FAERS Safety Report 7508873-0 (Version None)
Quarter: 2011Q2

REPORT INFORMATION
  Report Type: 
  Country: None (occurrence: None)
  Receive Date: 20110527
  Receipt Date: 20110516
  Transmission Date: 20111010
  Serious: Yes (Other)
  Sender: FDA-Public Use
  Company Number: MA-BRISTOL-MYERS SQUIBB COMPANY-15749476

PATIENT
  Age: 18 Year
  Sex: Female

DRUGS (2)
  1. CISPLATIN [Suspect]
     Indication: OVARIAN NEOPLASM
     Dosage: ON DAY 1
  2. ETOPOSIDE [Suspect]
     Indication: OVARIAN NEOPLASM
     Dosage: ON DAYS 1-3

REACTIONS (1)
  - OVARIAN GERM CELL TERATOMA BENIGN [None]
